FAERS Safety Report 4741925-7 (Version None)
Quarter: 2005Q3

REPORT INFORMATION
  Report Type: 
  Country: None (occurrence: None)
  Receive Date: 20050801
  Receipt Date: 20050620
  Transmission Date: 20060218
  Serious: No
  Sender: FDA-Public Use
  Company Number: 2005PV000066

PATIENT
  Age: 57 Year
  Sex: Female
  Weight: 111.1313 kg

DRUGS (11)
  1. BYETTA [Suspect]
     Indication: DIABETES MELLITUS NON-INSULIN-DEPENDENT
     Dosage: 5 UG; BID;SC
     Route: 058
     Dates: start: 20050619, end: 20050619
  2. AMARYL [Concomitant]
  3. ACTOS [Concomitant]
  4. TOPROL-XL [Concomitant]
  5. CADUET [Concomitant]
  6. AVALIDE [Concomitant]
  7. PREMARIN [Concomitant]
  8. HUMULIN [Concomitant]
  9. LANTUS [Concomitant]
  10. HUMALIN [Concomitant]
  11. HUMALIN [Concomitant]

REACTIONS (3)
  - DECREASED APPETITE [None]
  - HEADACHE [None]
  - NAUSEA [None]
